FAERS Safety Report 6114143-8 (Version None)
Quarter: 2009Q1

REPORT INFORMATION
  Report Type: 
  Country: None (occurrence: None)
  Receive Date: 20090312
  Receipt Date: 20080409
  Transmission Date: 20090719
  Serious: No
  Sender: FDA-Public Use
  Company Number: US-ABBOTT-08P-163-0446301-00

PATIENT
  Age: 35 Year
  Sex: Male

DRUGS (4)
  1. DEPAKOTE [Suspect]
     Indication: MENTAL DISORDER
  2. TOPIRAMATE [Suspect]
     Indication: DRUG USE FOR UNKNOWN INDICATION
  3. CLOZAPINE [Concomitant]
     Indication: DRUG USE FOR UNKNOWN INDICATION
  4. METFORMIN HCL [Concomitant]
     Indication: DRUG USE FOR UNKNOWN INDICATION

REACTIONS (3)
  - AMMONIA INCREASED [None]
  - SOMNOLENCE [None]
  - WEIGHT INCREASED [None]
